FAERS Safety Report 8533504-0 (Version None)
Quarter: 2012Q3

REPORT INFORMATION
  Report Type: 
  Country: None (occurrence: None)
  Receive Date: 20120724
  Receipt Date: 20120719
  Transmission Date: 20120928
  Serious: Yes (Death)
  Sender: FDA-Public Use
  Company Number: US-ELI_LILLY_AND_COMPANY-US201206002961

PATIENT
  Sex: Male
  Weight: 153.29 kg

DRUGS (4)
  1. TYVASO [Concomitant]
     Indication: PULMONARY ARTERIAL HYPERTENSION
     Dosage: 18 UG QID
     Route: 065
     Dates: start: 20120607
  2. ADCIRCA [Suspect]
     Indication: PULMONARY ARTERIAL HYPERTENSION
     Dosage: UNK, UNKNOWN
     Route: 065
  3. LETAIRIS [Concomitant]
     Indication: PULMONARY HYPERTENSION
     Dosage: UNK, UNKNOWN
     Route: 048
  4. DIURETICS [Concomitant]
     Dosage: UNK, UNKNOWN
     Route: 065

REACTIONS (1)
  - DEATH [None]
